FAERS Safety Report 23222754 (Version 3)
Quarter: 2023Q4

REPORT INFORMATION
  Report Type: Spontaneous
  Country: US (occurrence: US)
  Receive Date: 20231123
  Receipt Date: 20231128
  Transmission Date: 20240110
  Serious: No
  Sender: FDA-Public Use
  Company Number: US-ABBVIE-5507374

PATIENT
  Sex: Female

DRUGS (1)
  1. BOTOX [Suspect]
     Active Substance: ONABOTULINUMTOXINA
     Indication: Muscle tightness
     Dosage: TIME INTERVAL: AS NECESSARY
     Route: 065
     Dates: start: 202310, end: 202310

REACTIONS (9)
  - Pain [Unknown]
  - Presyncope [Unknown]
  - Muscle tightness [Unknown]
  - Arthralgia [Unknown]
  - Musculoskeletal stiffness [Unknown]
  - Anxiety [Unknown]
  - Musculoskeletal pain [Unknown]
  - Intraocular pressure increased [Unknown]
  - Fear of injection [Unknown]
